FAERS Safety Report 17501102 (Version 2)
Quarter: 2020Q3

REPORT INFORMATION
  Report Type: Spontaneous
  Country: US (occurrence: US)
  Receive Date: 20200305
  Receipt Date: 20200715
  Transmission Date: 20201102
  Serious: No
  Sender: FDA-Public Use
  Company Number: US-GLAXOSMITHKLINE-US2020035138

PATIENT
  Sex: Female

DRUGS (1)
  1. BREO ELLIPTA [Suspect]
     Active Substance: FLUTICASONE FUROATE\VILANTEROL TRIFENATATE
     Indication: CHRONIC OBSTRUCTIVE PULMONARY DISEASE
     Dosage: UNK UNK, 1D
     Route: 055
     Dates: start: 201911

REACTIONS (5)
  - Seborrhoea [Unknown]
  - Dyspnoea [Unknown]
  - Gingival discomfort [Unknown]
  - Wrong technique in device usage process [Unknown]
  - Eye pain [Unknown]
